FAERS Safety Report 21771289 (Version 2)
Quarter: 2023Q4

REPORT INFORMATION
  Report Type: Report from Study
  Country: US (occurrence: US)
  Receive Date: 20221223
  Receipt Date: 20231006
  Transmission Date: 20240109
  Serious: No
  Sender: FDA-Public Use
  Company Number: US-SA-SAC20221220000300

PATIENT
  Age: 53 Year
  Sex: Female

DRUGS (3)
  1. ALEMTUZUMAB [Suspect]
     Active Substance: ALEMTUZUMAB
     Dosage: UNK
     Route: 041
     Dates: start: 20190930
  2. GILENYA [Concomitant]
     Active Substance: FINGOLIMOD HYDROCHLORIDE
     Route: 041
  3. REBIF [Concomitant]
     Active Substance: INTERFERON BETA-1A

REACTIONS (2)
  - Anaemia [Not Recovered/Not Resolved]
  - Full blood count abnormal [Not Recovered/Not Resolved]
